FAERS Safety Report 6037437-3 (Version None)
Quarter: 2009Q1

REPORT INFORMATION
  Report Type: 
  Country: None (occurrence: None)
  Receive Date: 20090114
  Receipt Date: 20090108
  Transmission Date: 20090719
  Serious: Yes (Hospitalization)
  Sender: FDA-Public Use
  Company Number: DE-ABBOTT-08P-062-0487643-00

PATIENT
  Sex: Female

DRUGS (7)
  1. HUMIRA [Suspect]
     Indication: PSORIASIS
     Route: 058
     Dates: start: 20070201, end: 20081003
  2. HUMIRA [Suspect]
     Dates: start: 20081115
  3. KALINOR [Concomitant]
     Indication: DRUG USE FOR UNKNOWN INDICATION
  4. PREDNISONE [Concomitant]
     Indication: PSORIASIS
  5. PREDNISONE [Concomitant]
     Indication: PSORIATIC ARTHROPATHY
  6. VERAPAMIL [Concomitant]
     Indication: HYPERTENSION
     Route: 048
  7. CORDINATE PLUS [Concomitant]
     Indication: HYPERTENSION
     Route: 048

REACTIONS (1)
  - ARTHRITIS [None]
